FAERS Safety Report 19020701 (Version 1)
Quarter: 2021Q1

REPORT INFORMATION
  Report Type: Spontaneous
  Country: US (occurrence: US)
  Receive Date: 20210317
  Receipt Date: 20210317
  Transmission Date: 20210420
  Serious: Yes (Hospitalization)
  Sender: FDA-Public Use
  Company Number: US-STRIDES ARCOLAB LIMITED-2021SP003233

PATIENT
  Age: 50 Year
  Sex: Female

DRUGS (5)
  1. METHADONE [Interacting]
     Active Substance: METHADONE HYDROCHLORIDE
     Indication: DRUG ABUSE
     Dosage: UNK
     Route: 065
  2. CEFTRIAXONE. [Suspect]
     Active Substance: CEFTRIAXONE
     Indication: PNEUMONIA ASPIRATION
     Dosage: UNK
     Route: 042
  3. METOCLOPRAMIDE. [Interacting]
     Active Substance: METOCLOPRAMIDE
     Indication: NAUSEA
     Dosage: 10 MILLIGRAM
     Route: 042
  4. METOCLOPRAMIDE. [Interacting]
     Active Substance: METOCLOPRAMIDE
     Indication: VOMITING
  5. METRONIDAZOLE. [Suspect]
     Active Substance: METRONIDAZOLE
     Indication: PNEUMONIA ASPIRATION
     Dosage: UNK, INFUSED OVER 30 MIN
     Route: 042

REACTIONS (2)
  - Torsade de pointes [Recovered/Resolved]
  - Drug interaction [Unknown]
